FAERS Safety Report 8974007 (Version 1)
Quarter: 2012Q4

REPORT INFORMATION
  Report Type: 
  Country: US (occurrence: US)
  Receive Date: 20121218
  Receipt Date: 20121218
  Transmission Date: 20130627
  Serious: No
  Sender: FDA-Public Use
  Company Number: US-BRISTOL-MYERS SQUIBB COMPANY-16839417

PATIENT
  Age: 50 Year
  Sex: Female
  Weight: 107 kg

DRUGS (2)
  1. ABILIFY TABS [Suspect]
     Indication: BIPOLAR I DISORDER
     Dosage: 10 - 15mg, 10mg
     Route: 048
  2. DEPAKOTE [Concomitant]

REACTIONS (1)
  - Feeling abnormal [Unknown]
